FAERS Safety Report 20831046 (Version 4)
Quarter: 2023Q2

REPORT INFORMATION
  Report Type: Spontaneous
  Country: US (occurrence: US)
  Receive Date: 20220515
  Receipt Date: 20230403
  Transmission Date: 20230722
  Serious: No
  Sender: FDA-Public Use
  Company Number: US-BRISTOL-MYERS SQUIBB COMPANY-2022-023398

PATIENT
  Age: 58 Year
  Sex: Male

DRUGS (2)
  1. INREBIC [Suspect]
     Active Substance: FEDRATINIB HYDROCHLORIDE
     Indication: Myelofibrosis
     Dates: start: 20220323
  2. INREBIC [Suspect]
     Active Substance: FEDRATINIB HYDROCHLORIDE
     Route: 048
     Dates: start: 20220308

REACTIONS (6)
  - Dyspnoea [Unknown]
  - Fatigue [Unknown]
  - Bone pain [Unknown]
  - Confusional state [Unknown]
  - Visual impairment [Unknown]
  - Pain [Unknown]
